FAERS Safety Report 6029338-1 (Version None)
Quarter: 2009Q1

REPORT INFORMATION
  Report Type: 
  Country: None (occurrence: None)
  Receive Date: 20090106
  Receipt Date: 20081229
  Transmission Date: 20090719
  Serious: Yes (Hospitalization)
  Sender: FDA-Public Use
  Company Number: DE-MERCK-0812DEU00208

PATIENT
  Age: 45 Year
  Sex: Male

DRUGS (8)
  1. SINGULAIR [Suspect]
     Indication: ASTHMA
     Route: 048
     Dates: start: 20050101, end: 20081201
  2. DARUNAVIR [Concomitant]
     Route: 048
  3. RITONAVIR [Concomitant]
     Route: 048
  4. ABACAVIR SULFATE [Concomitant]
     Route: 048
  5. TENOFOVIR [Concomitant]
     Route: 048
  6. FORMOTEROL FUMARATE [Concomitant]
     Route: 065
  7. ACYCLOVIR [Concomitant]
     Route: 048
  8. ISENTRESS [Concomitant]
     Route: 048

REACTIONS (2)
  - ALLERGIC GRANULOMATOUS ANGIITIS [None]
  - WEGENER'S GRANULOMATOSIS [None]
